FAERS Safety Report 13505612 (Version 1)
Quarter: 2017Q2

REPORT INFORMATION
  Report Type: Spontaneous
  Country: PE (occurrence: PE)
  Receive Date: 20170502
  Receipt Date: 20170502
  Transmission Date: 20170830
  Serious: Yes (Life-Threatening, Other)
  Sender: FDA-Public Use
  Company Number: PE-MERCK KGAA-2020141

PATIENT
  Age: 1 Day
  Sex: Male

DRUGS (1)
  1. NOVOTHYROX [Suspect]
     Active Substance: LEVOTHYROXINE SODIUM
     Indication: PRODUCT USED FOR UNKNOWN INDICATION
     Route: 065

REACTIONS (5)
  - Neonatal cardiac failure [Unknown]
  - Thyrotoxic crisis [Recovered/Resolved]
  - Foetal exposure during pregnancy [Recovered/Resolved]
  - Small for dates baby [Unknown]
  - Foetal distress syndrome [Recovered/Resolved]
